FAERS Safety Report 7280907-0 (Version None)
Quarter: 2011Q1

REPORT INFORMATION
  Report Type: 
  Country: None (occurrence: None)
  Receive Date: 20110208
  Receipt Date: 20101228
  Transmission Date: 20110831
  Serious: Yes (Death, Other)
  Sender: FDA-Public Use
  Company Number: US-BAXTER-2010BH003656

PATIENT
  Age: 64 Year
  Sex: Male

DRUGS (112)
  1. HEPARIN SODIUM INJECTION [Suspect]
     Route: 065
     Dates: start: 20080301
  2. HEPARIN SODIUM INJECTION [Suspect]
     Route: 065
     Dates: start: 20080301
  3. HEPARIN SODIUM INJECTION [Suspect]
     Route: 040
     Dates: start: 20080506, end: 20080506
  4. HEPARIN SODIUM INJECTION [Suspect]
     Route: 058
     Dates: start: 20080505, end: 20080505
  5. HEPARIN SODIUM INJECTION [Suspect]
     Route: 042
     Dates: start: 20091009
  6. HEPARIN SODIUM INJECTION [Suspect]
     Route: 042
     Dates: start: 20080515, end: 20080515
  7. HEPARIN SODIUM INJECTION [Suspect]
     Route: 042
     Dates: start: 20091009
  8. HEPARIN SODIUM INJECTION [Suspect]
     Route: 042
     Dates: start: 20091009
  9. HEPARIN SODIUM INJECTION [Suspect]
     Route: 065
     Dates: start: 20091011
  10. HEPARIN SODIUM INJECTION [Suspect]
     Route: 065
     Dates: start: 20091011
  11. VITAMIN B [Concomitant]
     Indication: PRODUCT USED FOR UNKNOWN INDICATION
     Route: 065
  12. PRILOSEC [Concomitant]
     Indication: PRODUCT USED FOR UNKNOWN INDICATION
     Route: 065
  13. HEPARIN SODIUM INJECTION [Suspect]
     Route: 065
     Dates: start: 20080301
  14. HEPARIN SODIUM INJECTION [Suspect]
     Route: 065
     Dates: start: 20080301
  15. HEPARIN SODIUM INJECTION [Suspect]
     Route: 040
     Dates: start: 20080506, end: 20080506
  16. HEPARIN SODIUM INJECTION [Suspect]
     Route: 058
     Dates: start: 20080504, end: 20080504
  17. HEPARIN SODIUM INJECTION [Suspect]
     Route: 058
     Dates: start: 20080505, end: 20080505
  18. HEPARIN SODIUM INJECTION [Suspect]
     Route: 042
     Dates: start: 20080515, end: 20080515
  19. HEPARIN SODIUM INJECTION [Suspect]
     Route: 065
     Dates: start: 20080301
  20. HEPARIN SODIUM INJECTION [Suspect]
     Route: 058
     Dates: start: 20080302, end: 20080302
  21. HEPARIN SODIUM INJECTION [Suspect]
     Route: 058
     Dates: start: 20080301
  22. HEPARIN SODIUM INJECTION [Suspect]
     Route: 058
     Dates: start: 20080301
  23. HEPARIN SODIUM INJECTION [Suspect]
     Route: 058
     Dates: start: 20080301
  24. HEPARIN SODIUM INJECTION [Suspect]
     Route: 058
     Dates: start: 20080504, end: 20080504
  25. HEPARIN SODIUM INJECTION [Suspect]
     Route: 042
     Dates: start: 20091009
  26. HEPARIN SODIUM INJECTION [Suspect]
     Route: 058
     Dates: start: 20080505, end: 20080505
  27. HEPARIN SODIUM INJECTION [Suspect]
     Route: 042
     Dates: start: 20091009
  28. HEPARIN SODIUM INJECTION [Suspect]
     Route: 040
     Dates: start: 20080503, end: 20080503
  29. HEPARIN SODIUM INJECTION [Suspect]
     Route: 040
     Dates: start: 20080503, end: 20080503
  30. HEPARIN SODIUM INJECTION [Suspect]
     Route: 042
     Dates: start: 20080515, end: 20080515
  31. HEPARIN SODIUM INJECTION [Suspect]
     Route: 042
     Dates: start: 20091009, end: 20091009
  32. CARBIDOPA + LEVODOPA [Concomitant]
     Indication: PRODUCT USED FOR UNKNOWN INDICATION
     Route: 065
  33. NOVEL ERYTHROPOIESIS STIMULATING PROTEIN [Concomitant]
     Indication: PRODUCT USED FOR UNKNOWN INDICATION
     Route: 065
  34. HEPARIN SODIUM INJECTION [Suspect]
     Indication: THROMBOSIS PROPHYLAXIS
     Route: 010
     Dates: start: 20080320
  35. HEPARIN SODIUM INJECTION [Suspect]
     Indication: EMBOLISM VENOUS
     Route: 010
     Dates: start: 20080320
  36. HEPARIN SODIUM INJECTION [Suspect]
     Indication: PERITONEAL DIALYSIS
     Route: 010
     Dates: start: 20080320
  37. HEPARIN SODIUM INJECTION [Suspect]
     Route: 042
     Dates: start: 20091009
  38. HEPARIN SODIUM INJECTION [Suspect]
     Route: 042
     Dates: start: 20091009
  39. HEPARIN SODIUM INJECTION [Suspect]
     Route: 040
     Dates: start: 20080515, end: 20080515
  40. HEPARIN SODIUM INJECTION [Suspect]
     Route: 040
     Dates: start: 20080515, end: 20080515
  41. HEPARIN SODIUM INJECTION [Suspect]
     Route: 040
     Dates: start: 20091009, end: 20091009
  42. HEPARIN SODIUM INJECTION [Suspect]
     Route: 040
     Dates: start: 20091009, end: 20091009
  43. HEPARIN SODIUM INJECTION [Suspect]
     Route: 065
     Dates: start: 20091011
  44. PREDNISONE [Concomitant]
     Indication: PRODUCT USED FOR UNKNOWN INDICATION
     Route: 065
  45. IRON [Concomitant]
     Indication: PRODUCT USED FOR UNKNOWN INDICATION
     Route: 065
  46. HEPARIN SODIUM INJECTION [Suspect]
     Indication: HAEMODIALYSIS
     Route: 010
     Dates: start: 20080320
  47. HEPARIN SODIUM INJECTION [Suspect]
     Indication: CATHETERISATION CARDIAC
     Route: 010
     Dates: start: 20080320
  48. HEPARIN SODIUM INJECTION [Suspect]
     Route: 040
     Dates: start: 20080506, end: 20080506
  49. HEPARIN SODIUM INJECTION [Suspect]
     Route: 042
     Dates: start: 20080506, end: 20080506
  50. HEPARIN SODIUM INJECTION [Suspect]
     Route: 042
     Dates: start: 20080506, end: 20080506
  51. HEPARIN SODIUM INJECTION [Suspect]
     Route: 042
     Dates: start: 20080506, end: 20080506
  52. HEPARIN SODIUM INJECTION [Suspect]
     Route: 042
     Dates: start: 20080506, end: 20080506
  53. HEPARIN SODIUM INJECTION [Suspect]
     Route: 040
     Dates: start: 20080503, end: 20080503
  54. HEPARIN SODIUM INJECTION [Suspect]
     Route: 040
     Dates: start: 20080503, end: 20080503
  55. HEPARIN SODIUM INJECTION [Suspect]
     Route: 042
     Dates: start: 20080503, end: 20080503
  56. HEPARIN SODIUM INJECTION [Suspect]
     Route: 042
     Dates: start: 20080503, end: 20080503
  57. HEPARIN SODIUM INJECTION [Suspect]
     Route: 042
     Dates: start: 20091009
  58. HEPARIN SODIUM INJECTION [Suspect]
     Route: 065
     Dates: start: 20091011
  59. PHOSLO [Concomitant]
     Indication: PRODUCT USED FOR UNKNOWN INDICATION
     Route: 065
  60. COMTAN [Concomitant]
     Indication: PRODUCT USED FOR UNKNOWN INDICATION
     Route: 065
  61. HEPARIN SODIUM INJECTION [Suspect]
     Route: 058
     Dates: start: 20080302, end: 20080302
  62. HEPARIN SODIUM INJECTION [Suspect]
     Route: 058
     Dates: start: 20080504, end: 20080504
  63. HEPARIN SODIUM INJECTION [Suspect]
     Route: 058
     Dates: start: 20080504, end: 20080504
  64. HEPARIN SODIUM INJECTION [Suspect]
     Route: 040
     Dates: start: 20080515, end: 20080515
  65. HEPARIN SODIUM INJECTION [Suspect]
     Route: 042
     Dates: start: 20091009
  66. HEPARIN SODIUM INJECTION [Suspect]
     Route: 042
     Dates: start: 20091009
  67. HEPARIN SODIUM INJECTION [Suspect]
     Dosage: DOSE UNIT:UNITS PER KILOGRAM
     Route: 042
     Dates: start: 20091009
  68. HEPARIN SODIUM INJECTION [Suspect]
     Dosage: DOSE UNIT:UNITS PER KILOGRAM
     Route: 042
     Dates: start: 20091009
  69. HEPARIN SODIUM INJECTION [Suspect]
     Route: 042
     Dates: start: 20091009, end: 20091009
  70. HEPARIN SODIUM INJECTION [Suspect]
     Route: 042
     Dates: start: 20091009, end: 20091009
  71. LISINOPRIL [Concomitant]
     Indication: PRODUCT USED FOR UNKNOWN INDICATION
     Route: 065
  72. IMODIUM [Concomitant]
     Indication: PRODUCT USED FOR UNKNOWN INDICATION
     Route: 065
  73. HEPARIN SODIUM INJECTION [Suspect]
     Route: 058
     Dates: start: 20080302, end: 20080302
  74. HEPARIN SODIUM INJECTION [Suspect]
     Route: 040
     Dates: start: 20080506, end: 20080506
  75. HEPARIN SODIUM INJECTION [Suspect]
     Route: 042
     Dates: start: 20091009
  76. HEPARIN SODIUM INJECTION [Suspect]
     Route: 042
     Dates: start: 20091009
  77. HEPARIN SODIUM INJECTION [Suspect]
     Route: 042
     Dates: start: 20091009
  78. HEPARIN SODIUM INJECTION [Suspect]
     Route: 042
     Dates: start: 20080503, end: 20080503
  79. HEPARIN SODIUM INJECTION [Suspect]
     Route: 042
     Dates: start: 20080503, end: 20080503
  80. HEPARIN SODIUM INJECTION [Suspect]
     Route: 042
     Dates: start: 20080515, end: 20080515
  81. HEPARIN SODIUM INJECTION [Suspect]
     Dosage: DOSE UNIT:UNITS PER KILOGRAM
     Route: 042
     Dates: start: 20091009
  82. HEPARIN SODIUM INJECTION [Suspect]
     Route: 040
     Dates: start: 20091009, end: 20091009
  83. HEPARIN SODIUM INJECTION [Suspect]
     Route: 042
     Dates: start: 20091009, end: 20091009
  84. HEPARIN SODIUM INJECTION [Suspect]
     Indication: CARDIOPULMONARY BYPASS
     Route: 065
     Dates: start: 20080508, end: 20080508
  85. PACERONE [Concomitant]
     Indication: PRODUCT USED FOR UNKNOWN INDICATION
     Route: 065
  86. FUROSEMIDE [Concomitant]
     Indication: PRODUCT USED FOR UNKNOWN INDICATION
     Route: 065
  87. HEPARIN SODIUM INJECTION [Suspect]
     Route: 058
     Dates: start: 20080302, end: 20080302
  88. HEPARIN SODIUM INJECTION [Suspect]
     Route: 058
     Dates: start: 20080302, end: 20080302
  89. HEPARIN SODIUM INJECTION [Suspect]
     Route: 040
     Dates: start: 20080506, end: 20080506
  90. HEPARIN SODIUM INJECTION [Suspect]
     Route: 058
     Dates: start: 20080301
  91. HEPARIN SODIUM INJECTION [Suspect]
     Route: 058
     Dates: start: 20080301
  92. HEPARIN SODIUM INJECTION [Suspect]
     Route: 058
     Dates: start: 20080504, end: 20080504
  93. HEPARIN SODIUM INJECTION [Suspect]
     Route: 042
     Dates: start: 20080506, end: 20080506
  94. HEPARIN SODIUM INJECTION [Suspect]
     Route: 042
     Dates: start: 20091009
  95. HEPARIN SODIUM INJECTION [Suspect]
     Route: 042
     Dates: start: 20091009
  96. HEPARIN SODIUM INJECTION [Suspect]
     Route: 058
     Dates: start: 20080505, end: 20080505
  97. HEPARIN SODIUM INJECTION [Suspect]
     Route: 058
     Dates: start: 20080505, end: 20080505
  98. HEPARIN SODIUM INJECTION [Suspect]
     Route: 040
     Dates: start: 20080503, end: 20080503
  99. HEPARIN SODIUM INJECTION [Suspect]
     Route: 042
     Dates: start: 20080503, end: 20080503
  100. HEPARIN SODIUM INJECTION [Suspect]
     Route: 040
     Dates: start: 20080515, end: 20080515
  101. HEPARIN SODIUM INJECTION [Suspect]
     Route: 040
     Dates: start: 20080515, end: 20080515
  102. HEPARIN SODIUM INJECTION [Suspect]
     Route: 042
     Dates: start: 20080515, end: 20080515
  103. HEPARIN SODIUM INJECTION [Suspect]
     Dosage: DOSE UNIT:UNITS PER KILOGRAM
     Route: 042
     Dates: start: 20091009
  104. HEPARIN SODIUM INJECTION [Suspect]
     Dosage: DOSE UNIT:UNITS PER KILOGRAM
     Route: 042
     Dates: start: 20091009
  105. HEPARIN SODIUM INJECTION [Suspect]
     Route: 040
     Dates: start: 20091009, end: 20091009
  106. HEPARIN SODIUM INJECTION [Suspect]
     Route: 040
     Dates: start: 20091009, end: 20091009
  107. HEPARIN SODIUM INJECTION [Suspect]
     Route: 042
     Dates: start: 20091009, end: 20091009
  108. HEPARIN SODIUM INJECTION [Suspect]
     Route: 065
     Dates: start: 20091011
  109. BACLOFEN [Suspect]
     Indication: PRODUCT USED FOR UNKNOWN INDICATION
     Route: 065
     Dates: end: 20090604
  110. FLOMAX [Concomitant]
     Indication: PRODUCT USED FOR UNKNOWN INDICATION
     Route: 065
  111. METOPROLOL TARTRATE [Concomitant]
     Indication: PRODUCT USED FOR UNKNOWN INDICATION
     Route: 065
  112. ESZOPICLONE [Concomitant]
     Indication: PRODUCT USED FOR UNKNOWN INDICATION
     Route: 065

REACTIONS (24)
  - THROMBOCYTOPENIA [None]
  - PERICARDITIS [None]
  - DELIRIUM [None]
  - BLOOD PRESSURE DECREASED [None]
  - PHARYNGEAL OEDEMA [None]
  - NECK PAIN [None]
  - ERYTHEMA [None]
  - CARDIAC DISORDER [None]
  - INFECTION [None]
  - URINARY TRACT INFECTION [None]
  - PYREXIA [None]
  - VOMITING [None]
  - GAIT DISTURBANCE [None]
  - MUSCLE SPASMS [None]
  - CONFUSIONAL STATE [None]
  - DECREASED APPETITE [None]
  - CARDIOGENIC SHOCK [None]
  - ACUTE MYOCARDIAL INFARCTION [None]
  - ORGAN FAILURE [None]
  - ATRIAL FIBRILLATION [None]
  - CHEST PAIN [None]
  - NAUSEA [None]
  - HEADACHE [None]
  - ASTHENIA [None]
